FAERS Safety Report 6395807-8 (Version None)
Quarter: 2009Q4

REPORT INFORMATION
  Report Type: 
  Country: None (occurrence: None)
  Receive Date: 20091009
  Receipt Date: 20090821
  Transmission Date: 20100525
  Serious: No
  Sender: FDA-Public Use
  Company Number: A0790398A

PATIENT
  Age: 69 Year
  Sex: Female
  Weight: 80.9 kg

DRUGS (13)
  1. TYKERB [Suspect]
     Indication: BREAST CANCER
     Dosage: 1250MG PER DAY
     Route: 048
     Dates: start: 20090507
  2. WARFARIN SODIUM [Suspect]
     Indication: DRUG USE FOR UNKNOWN INDICATION
     Dosage: 2MG PER DAY
     Dates: start: 20060101, end: 20090521
  3. METFORMIN HCL [Concomitant]
  4. ALLEGRA [Concomitant]
  5. NEXIUM [Concomitant]
  6. LISINOPRIL [Concomitant]
  7. LIPITOR [Concomitant]
  8. SINGULAIR [Concomitant]
  9. FERROUS GLUCONATE [Concomitant]
  10. NASACORT [Concomitant]
  11. ALBUTEROL [Concomitant]
  12. XELODA [Concomitant]
     Dosage: 1000MG CYCLIC
     Route: 048
     Dates: start: 20070101
  13. ASPIRIN [Concomitant]
     Indication: ANTICOAGULANT THERAPY
     Route: 048
     Dates: start: 20090601

REACTIONS (9)
  - ANAL FISSURE [None]
  - CONTUSION [None]
  - DIARRHOEA [None]
  - EPISTAXIS [None]
  - INTERNATIONAL NORMALISED RATIO INCREASED [None]
  - IRON DEFICIENCY ANAEMIA [None]
  - LUNG NEOPLASM [None]
  - METABOLIC DISORDER [None]
  - PAIN IN EXTREMITY [None]
